FAERS Safety Report 9508002 (Version 1)
Quarter: 2013Q1

REPORT INFORMATION
  Report Type: Spontaneous
  Country: US (occurrence: None)
  Receive Date: 20130305
  Receipt Date: 20130305
  Transmission Date: 20140127
  Serious: Yes (Other)
  Sender: FDA-Public Use
  Company Number: 163-21880-12050147

PATIENT
  Age: 76 Year
  Sex: Male

DRUGS (7)
  1. REVLIMID [Suspect]
     Indication: PLASMA CELL MYELOMA
     Dosage: 10 MG, DAILY X 7 DAYS ON, 7 DAYS OFF, PO
     Route: 048
     Dates: start: 20120112, end: 201204
  2. AGGRENOX (ASASANTIN) [Concomitant]
  3. BETAPACE (SOTALOL HYDROCHLORIDE) [Concomitant]
  4. LASIX (FUROSEMIDE) [Concomitant]
  5. MEXITIL (MEXILETINE HYDROCHLORIDE) [Concomitant]
  6. PRILOSEC [Concomitant]
  7. ZOLOFT (SERTRALINE HYDROCHLORIDE) [Concomitant]

REACTIONS (1)
  - Anaemia [None]
